FAERS Safety Report 10896681 (Version 8)
Quarter: 2015Q4

REPORT INFORMATION
  Report Type: Report from Study
  Country: CA (occurrence: CA)
  Receive Date: 20150309
  Receipt Date: 20151214
  Transmission Date: 20160304
  Serious: Yes (Death, Hospitalization, Other)
  Sender: FDA-Public Use
  Company Number: PHHY2015CA013309

PATIENT
  Age: 67 Year
  Sex: Male

DRUGS (3)
  1. SANDOSTATIN [Suspect]
     Active Substance: OCTREOTIDE ACETATE
     Indication: GASTRIC ANTRAL VASCULAR ECTASIA
     Dosage: UNK UNK, TID
     Route: 058
     Dates: start: 20141225, end: 20141231
  2. SANDOSTATIN LAR DEPOT [Suspect]
     Active Substance: OCTREOTIDE ACETATE
     Indication: GASTRIC ANTRAL VASCULAR ECTASIA
     Dosage: 30 MG, EVERY 4 WEEKS
     Route: 030
     Dates: start: 20141228, end: 20151103
  3. REMODULIN [Concomitant]
     Active Substance: TREPROSTINIL
     Indication: PRODUCT USED FOR UNKNOWN INDICATION
     Route: 065

REACTIONS (23)
  - Renal failure [Unknown]
  - White blood cell count increased [Unknown]
  - Flatulence [Unknown]
  - Haemorrhage [Not Recovered/Not Resolved]
  - Pulmonary oedema [Unknown]
  - Arthralgia [Unknown]
  - Injection site pain [Unknown]
  - Product use issue [Unknown]
  - Oedema peripheral [Unknown]
  - Abdominal pain [Unknown]
  - Influenza [Unknown]
  - Gastrointestinal haemorrhage [Fatal]
  - Myocardial infarction [Unknown]
  - Dyspnoea [Unknown]
  - Cholecystitis infective [Unknown]
  - Malaise [Unknown]
  - Diarrhoea [Unknown]
  - Renal disorder [Unknown]
  - Poor quality sleep [Unknown]
  - Chest pain [Recovered/Resolved]
  - Anaemia [Unknown]
  - General physical health deterioration [Unknown]
  - Fatigue [Unknown]

NARRATIVE: CASE EVENT DATE: 20141228
